FAERS Safety Report 7864604-6 (Version None)
Quarter: 2011Q4

REPORT INFORMATION
  Report Type: 
  Country: None (occurrence: None)
  Receive Date: 20111028
  Receipt Date: 20111019
  Transmission Date: 20120403
  Serious: Yes (Hospitalization)
  Sender: FDA-Public Use
  Company Number: PL-SANOFI-AVENTIS-2011SA048583

PATIENT
  Age: 75 Year
  Sex: Male
  Weight: 73 kg

DRUGS (9)
  1. RAMIPRIL [Concomitant]
     Route: 065
  2. POTASSIUM [Concomitant]
  3. DILTIAZEM HCL [Concomitant]
     Route: 065
  4. DRONEDARONE HCL [Suspect]
     Indication: ATRIAL FIBRILLATION
     Route: 048
     Dates: start: 20101201, end: 20101203
  5. FUROSEMIDE [Concomitant]
     Route: 065
  6. FORMOTEROL FUMARATE [Concomitant]
  7. IPRATROPIUM BROMIDE [Concomitant]
  8. WARFARIN SODIUM [Concomitant]
     Route: 065
  9. THEOPHYLLINE [Concomitant]
     Route: 065

REACTIONS (2)
  - CARDIAC FAILURE [None]
  - HEPATIC ENZYME INCREASED [None]
